FAERS Safety Report 19396210 (Version 1)
Quarter: 2021Q2

REPORT INFORMATION
  Report Type: Spontaneous
  Country: US (occurrence: US)
  Receive Date: 20210610
  Receipt Date: 20210610
  Transmission Date: 20210717
  Serious: No
  Sender: FDA-Public Use
  Company Number: US-JNJFOC-20210615205

PATIENT
  Age: 60 Year
  Sex: Female

DRUGS (9)
  1. PEPCID [Suspect]
     Active Substance: FAMOTIDINE
     Indication: ANAPHYLACTIC REACTION
     Route: 065
     Dates: start: 20210430
  2. SOLU?MEDROL [Concomitant]
     Active Substance: METHYLPREDNISOLONE SODIUM SUCCINATE
     Indication: VACCINATION COMPLICATION
     Route: 065
     Dates: start: 20210430
  3. EPIPEN [Concomitant]
     Active Substance: EPINEPHRINE
     Indication: ANAPHYLACTIC REACTION
     Route: 065
     Dates: start: 20210430
  4. COVID?19 VACCINE [Concomitant]
     Indication: COVID-19 IMMUNISATION
     Route: 065
     Dates: start: 20210430
  5. BENADRYL [Concomitant]
     Active Substance: DIPHENHYDRAMINE HYDROCHLORIDE
     Indication: VACCINATION COMPLICATION
     Route: 065
     Dates: start: 20210430
  6. BENADRYL [Concomitant]
     Active Substance: DIPHENHYDRAMINE HYDROCHLORIDE
     Indication: ANAPHYLACTIC REACTION
  7. SOLU?MEDROL [Concomitant]
     Active Substance: METHYLPREDNISOLONE SODIUM SUCCINATE
     Indication: ANAPHYLACTIC REACTION
  8. PEPCID [Suspect]
     Active Substance: FAMOTIDINE
     Indication: VACCINATION COMPLICATION
  9. EPIPEN [Concomitant]
     Active Substance: EPINEPHRINE
     Indication: VACCINATION COMPLICATION

REACTIONS (2)
  - Off label use [Unknown]
  - Product use in unapproved indication [Unknown]

NARRATIVE: CASE EVENT DATE: 20210430
